FAERS Safety Report 5959920-9 (Version None)
Quarter: 2008Q4

REPORT INFORMATION
  Report Type: 
  Country: None (occurrence: None)
  Receive Date: 20081120
  Receipt Date: 20081111
  Transmission Date: 20090506
  Serious: Yes (Hospitalization)
  Sender: FDA-Public Use
  Company Number: US-BIOGENIDEC-2008BI027742

PATIENT
  Age: 73 Year
  Sex: Male
  Weight: 113 kg

DRUGS (27)
  1. TYSABRI [Suspect]
     Indication: CROHN'S DISEASE
     Route: 042
     Dates: start: 20080331, end: 20080825
  2. AMMONIUM LACTATE 12% [Concomitant]
     Indication: DRUG USE FOR UNKNOWN INDICATION
     Route: 061
     Dates: start: 20080328
  3. AVODART [Concomitant]
     Indication: BENIGN PROSTATIC HYPERPLASIA
     Dates: start: 20060907
  4. CHOLESTYRAMINE [Concomitant]
     Indication: DRUG USE FOR UNKNOWN INDICATION
     Dates: start: 20080523
  5. CITALOPRAM HYDROBROMIDE [Concomitant]
     Indication: DEPRESSION
     Dates: start: 20051102
  6. CLONIDINE HCL [Concomitant]
     Indication: DRUG USE FOR UNKNOWN INDICATION
     Dates: start: 20080328
  7. DIBUCAINE 1% [Concomitant]
     Indication: DRUG USE FOR UNKNOWN INDICATION
     Route: 061
     Dates: start: 20080401
  8. DIOVAN [Concomitant]
     Indication: DRUG USE FOR UNKNOWN INDICATION
     Dates: start: 20051102
  9. FUROSEMIDE [Concomitant]
     Indication: DRUG USE FOR UNKNOWN INDICATION
     Dates: start: 20080212
  10. HYDROCODONE/ACETAMINOPHEN 10/500 [Concomitant]
     Indication: PAIN
     Dates: start: 20080328
  11. LANTUS [Concomitant]
     Indication: DRUG USE FOR UNKNOWN INDICATION
     Dates: start: 20051108
  12. MECLIZINE [Concomitant]
     Indication: DIZZINESS
     Dates: start: 20080328
  13. METOPROLOL SUCCINATE [Concomitant]
     Indication: DRUG USE FOR UNKNOWN INDICATION
     Dates: start: 20060608
  14. PENTASA [Concomitant]
     Indication: CROHN'S DISEASE
  15. PENTASA [Concomitant]
     Dates: start: 20081107
  16. PROMETHAZINE [Concomitant]
     Indication: DRUG USE FOR UNKNOWN INDICATION
     Dates: start: 20081027
  17. LORATADINE [Concomitant]
     Indication: DRUG USE FOR UNKNOWN INDICATION
  18. POTASSIUM CHLORIDE ER [Concomitant]
     Indication: DRUG USE FOR UNKNOWN INDICATION
  19. CYCLOBENZAPRINE HCL [Concomitant]
     Indication: MUSCLE SPASMS
  20. PREDNISONE TAB [Concomitant]
     Indication: CROHN'S DISEASE
  21. PREDNISONE TAB [Concomitant]
     Dates: start: 20080412, end: 20080413
  22. PREDNISONE TAB [Concomitant]
  23. SOLU-MEDROL [Concomitant]
     Indication: SMALL INTESTINAL OBSTRUCTION
     Route: 042
     Dates: start: 20080413
  24. ANTICORT [Concomitant]
     Indication: CROHN'S DISEASE
  25. CEPHALEXIN [Concomitant]
     Indication: DRUG USE FOR UNKNOWN INDICATION
     Dates: start: 20080401
  26. HYDDROCHLOROTHIAZIDE [Concomitant]
  27. ORAL STEROIDS (NOS) [Concomitant]

REACTIONS (14)
  - AMNESIA [None]
  - CELLULITIS [None]
  - DIARRHOEA [None]
  - DIZZINESS [None]
  - FATIGUE [None]
  - HEADACHE [None]
  - PITTING OEDEMA [None]
  - PULMONARY MASS [None]
  - RENAL FAILURE [None]
  - SMALL INTESTINAL OBSTRUCTION [None]
  - SMALL INTESTINE CARCINOMA [None]
  - VERTIGO [None]
  - VOMITING [None]
  - WEIGHT DECREASED [None]
